FAERS Safety Report 6869219-4 (Version None)
Quarter: 2010Q3

REPORT INFORMATION
  Report Type: 
  Country: None (occurrence: None)
  Receive Date: 20100722
  Receipt Date: 20080728
  Transmission Date: 20110219
  Serious: No
  Sender: FDA-Public Use
  Company Number: US-PFIZER INC-2008056166

PATIENT
  Sex: Female
  Weight: 71.818 kg

DRUGS (6)
  1. CHANTIX [Suspect]
     Indication: EX-TOBACCO USER
     Route: 048
     Dates: start: 20080621, end: 20080625
  2. MORPHINE SULFATE [Concomitant]
  3. NORCO [Concomitant]
     Dosage: EVERY 6 HOURS AS NEEDED
  4. LOPRESSOR [Concomitant]
  5. DYAZIDE [Concomitant]
  6. BENICAR [Concomitant]
     Dates: start: 20080101

REACTIONS (5)
  - DIARRHOEA [None]
  - GASTROENTERITIS VIRAL [None]
  - NAUSEA [None]
  - RETCHING [None]
  - SOMNOLENCE [None]
